FAERS Safety Report 25058285 (Version 1)
Quarter: 2025Q1

REPORT INFORMATION
  Report Type: Spontaneous
  Country: US (occurrence: None)
  Receive Date: 20250308
  Receipt Date: 20250308
  Transmission Date: 20250408
  Serious: Yes (Hospitalization)
  Sender: FDA-CTU
  Company Number: None

PATIENT
  Sex: Male

DRUGS (10)
  1. CYCLOSPORINE MODIFIED [Suspect]
     Active Substance: CYCLOSPORINE
     Indication: Heart transplant
     Dates: start: 20170314
  2. CYCLOSPORINE [Concomitant]
     Active Substance: CYCLOSPORINE
  3. DILTIAZEM TAB 90MG [Concomitant]
  4. DOXAZOSIN TAB2MG [Concomitant]
  5. DOXAZOSIN TAB4MG [Concomitant]
  6. HYDRALAZINE [Concomitant]
     Active Substance: HYDRALAZINE HYDROCHLORIDE
  7. LEVOTHYROXIN TAB 125MCG [Concomitant]
  8. POT CHLORIDE TAB 10MEQ ER [Concomitant]
  9. PRAVASTATIN [Concomitant]
     Active Substance: PRAVASTATIN
  10. PREDNISONE TAB5MG [Concomitant]

REACTIONS (1)
  - Back disorder [None]
